FAERS Safety Report 9395750 (Version 1)
Quarter: 2013Q3

REPORT INFORMATION
  Report Type: Spontaneous
  Country: US (occurrence: US)
  Receive Date: 20130711
  Receipt Date: 20130711
  Transmission Date: 20140515
  Serious: No
  Sender: FDA-Public Use
  Company Number: US-COVIDIEN/TYCO HEALTHCARE/MALLINCKRODT-T201303460

PATIENT
  Age: 58 Year
  Sex: Female
  Weight: 66.67 kg

DRUGS (4)
  1. OXYCODONE/ACETAMINOPHEN [Suspect]
     Indication: PAIN
     Dosage: 10/325 MG, 1 TABLET Q 3-4 HOURS
     Route: 048
     Dates: start: 201305, end: 20130627
  2. SEROQUEL [Concomitant]
     Indication: PRODUCT USED FOR UNKNOWN INDICATION
     Dosage: UNK
     Route: 048
  3. XANAX [Concomitant]
     Indication: PRODUCT USED FOR UNKNOWN INDICATION
     Dosage: UNK
     Route: 048
  4. CYMBALTA [Concomitant]
     Indication: PRODUCT USED FOR UNKNOWN INDICATION
     Dosage: UNK
     Route: 048

REACTIONS (4)
  - Inappropriate schedule of drug administration [Unknown]
  - Tremor [Not Recovered/Not Resolved]
  - Drug ineffective [Not Recovered/Not Resolved]
  - Drug diversion [Unknown]
